FAERS Safety Report 4320745-1 (Version None)
Quarter: 2004Q1

REPORT INFORMATION
  Report Type: 
  Country: None (occurrence: None)
  Receive Date: 20040315
  Receipt Date: 20030812
  Transmission Date: 20041129
  Serious: Yes (Death)
  Sender: FDA-Public Use
  Company Number: USA030843922

PATIENT

DRUGS (1)
  1. GEMZAR [Suspect]

REACTIONS (1)
  - BACTERIAL SEPSIS [None]
